FAERS Safety Report 13551961 (Version 2)
Quarter: 2018Q4

REPORT INFORMATION
  Report Type: Spontaneous
  Country: BR (occurrence: BR)
  Receive Date: 20170516
  Receipt Date: 20181001
  Transmission Date: 20190204
  Serious: No
  Sender: FDA-Public Use
  Company Number: PHHY2017BR068505

PATIENT
  Sex: Female
  Weight: 83 kg

DRUGS (1)
  1. HYDERGINE [Suspect]
     Active Substance: ERGOLOID MESYLATES
     Indication: CEREBROVASCULAR DISORDER
     Dosage: 1 DF, QD (AT BEDTIME)
     Route: 048

REACTIONS (9)
  - Headache [Unknown]
  - Depression [Not Recovered/Not Resolved]
  - Expired product administered [Unknown]
  - Panic disorder [Unknown]
  - Hypoaesthesia [Not Recovered/Not Resolved]
  - Memory impairment [Not Recovered/Not Resolved]
  - Condition aggravated [Not Recovered/Not Resolved]
  - Hypokinesia [Not Recovered/Not Resolved]
  - Dizziness [Not Recovered/Not Resolved]
